FAERS Safety Report 18855877 (Version 2)
Quarter: 2021Q1

REPORT INFORMATION
  Report Type: Spontaneous
  Country: KR (occurrence: KR)
  Receive Date: 20210206
  Receipt Date: 20210324
  Transmission Date: 20210420
  Serious: Yes (Hospitalization, Other)
  Sender: FDA-Public Use
  Company Number: KR-ACCORD-216610

PATIENT
  Age: 61 Year
  Sex: Male
  Weight: 53 kg

DRUGS (2)
  1. ETOPOSIDE. [Suspect]
     Active Substance: ETOPOSIDE
     Indication: SMALL CELL LUNG CANCER LIMITED STAGE
     Dosage: 100MG/M2 ADMINISTERED INTRAVENOUSLY FOR CONSECUTIVE 3 DAYS PER 1 CYCLE
     Route: 042
     Dates: start: 20180418
  2. CISPLATIN. [Suspect]
     Active Substance: CISPLATIN
     Indication: SMALL CELL LUNG CANCER LIMITED STAGE
     Dosage: 70MG/M2 ADMINISTERED INTRAVENOUSLY FOR A DAY PER 1 CYCLE ALSO RECEIVED FROM 29?MAR?2018, 14?MAY?2018
     Route: 042
     Dates: start: 20180418

REACTIONS (3)
  - Kaposi^s varicelliform eruption [Recovered/Resolved]
  - Febrile neutropenia [Recovered/Resolved]
  - Herpes simplex [Recovered/Resolved]

NARRATIVE: CASE EVENT DATE: 20180508
